FAERS Safety Report 10108951 (Version 6)
Quarter: 2014Q4

REPORT INFORMATION
  Report Type: Spontaneous
  Country: US (occurrence: None)
  Receive Date: 20140423
  Receipt Date: 20141014
  Transmission Date: 20150528
  Serious: Yes (Hospitalization)
  Sender: FDA-Public Use
  Company Number: US-000983

PATIENT
  Sex: Male

DRUGS (6)
  1. COUMADIN [Concomitant]
     Active Substance: WARFARIN SODIUM
  2. POTASSIUM [Concomitant]
     Active Substance: POTASSIUM
  3. SODIUM [Concomitant]
     Active Substance: SODIUM
  4. MAGNESIUM [Concomitant]
     Active Substance: MAGNESIUM
  5. SOLUTIONS FOR PARENTERAL NUTRITION [Concomitant]
     Active Substance: AMINO ACIDS\DEXTROSE\ELECTROLYTES NOS
  6. GATTEX [Suspect]
     Active Substance: TEDUGLUTIDE\WATER
     Indication: SHORT-BOWEL SYNDROME
     Dosage: (0.375 ML QD, STREN/VOLUM: 0.375 ML/ FREQU: ONCE A DAY SUBCUTANEOUS)
     Route: 058
     Dates: start: 20140328

REACTIONS (18)
  - Blood magnesium decreased [None]
  - Hypoaesthesia [None]
  - Loss of consciousness [None]
  - Drug administration error [None]
  - Nausea [None]
  - Dyspepsia [None]
  - Eye injury [None]
  - Blood sodium decreased [None]
  - Fall [None]
  - Visual impairment [None]
  - Drug dose omission [None]
  - Gastrointestinal stoma complication [None]
  - Blood potassium decreased [None]
  - Sensory loss [None]
  - Diarrhoea [None]
  - Contusion [None]
  - Weight increased [None]
  - Pain [None]

NARRATIVE: CASE EVENT DATE: 2014
